FAERS Safety Report 9293650 (Version 2)
Quarter: 2014Q2

REPORT INFORMATION
  Report Type: Spontaneous
  Country: US (occurrence: US)
  Receive Date: 20130516
  Receipt Date: 20140430
  Transmission Date: 20141212
  Serious: Yes (Disabling)
  Sender: FDA-Public Use
  Company Number: US-009507513-1305USA009433

PATIENT
  Sex: Male
  Weight: 79.37 kg

DRUGS (2)
  1. PROPECIA [Suspect]
     Indication: ALOPECIA
     Dosage: 1 MG, UNK
     Route: 048
     Dates: start: 20110106
  2. FINASTERIDE [Suspect]
     Indication: ALOPECIA
     Dosage: 5 MG, UNK
     Route: 048
     Dates: start: 20090925

REACTIONS (21)
  - Spinal disorder [Not Recovered/Not Resolved]
  - Major depression [Not Recovered/Not Resolved]
  - Drug administration error [Unknown]
  - Organic erectile dysfunction [Unknown]
  - Blood testosterone decreased [Unknown]
  - Anxiety [Unknown]
  - Hyperthyroidism [Unknown]
  - Neuropathy peripheral [Unknown]
  - Tinnitus [Unknown]
  - Cerumen impaction [Unknown]
  - Dysaesthesia [Recovered/Resolved]
  - Stress [Unknown]
  - Malaise [Unknown]
  - Genital herpes [Unknown]
  - Back pain [Not Recovered/Not Resolved]
  - Sexual dysfunction [Not Recovered/Not Resolved]
  - Erectile dysfunction [Not Recovered/Not Resolved]
  - Loss of libido [Unknown]
  - Ejaculation failure [Unknown]
  - Drug ineffective [Unknown]
  - Semen volume decreased [Unknown]
